FAERS Safety Report 9216589 (Version 3)
Quarter: 2013Q2

REPORT INFORMATION
  Report Type: Spontaneous
  Country: US (occurrence: None)
  Receive Date: 20130403
  Receipt Date: 20130507
  Transmission Date: 20140414
  Serious: Yes (Other)
  Sender: FDA-Public Use
  Company Number: 2013SGN00178

PATIENT
  Age: 17 Year
  Sex: Male
  Weight: 69.6 kg

DRUGS (2)
  1. ADCETRIS [Suspect]
     Indication: HODGKIN^S DISEASE RECURRENT
     Dosage: 1.24 MG, SINGLE?
     Dates: start: 201302, end: 201302
  2. GEMCITABINE (GEMCITABINE) [Concomitant]

REACTIONS (3)
  - Alanine aminotransferase increased [None]
  - Aspartate aminotransferase increased [None]
  - Hepatic steatosis [None]
